FAERS Safety Report 24641845 (Version 5)
Quarter: 2025Q1

REPORT INFORMATION
  Report Type: Spontaneous
  Country: CO (occurrence: CO)
  Receive Date: 20241120
  Receipt Date: 20250319
  Transmission Date: 20250408
  Serious: No
  Sender: PFIZER
  Company Number: CO-PFIZER INC-202400300860

PATIENT
  Age: 14 Year
  Sex: Male

DRUGS (1)
  1. GENOTROPIN [Suspect]
     Active Substance: SOMATROPIN
     Dosage: 2 MG, DAILY
     Route: 058

REACTIONS (2)
  - Wrong technique in device usage process [Unknown]
  - Device occlusion [Unknown]

NARRATIVE: CASE EVENT DATE: 20241109
